FAERS Safety Report 8764038 (Version 1)
Quarter: 2012Q4

REPORT INFORMATION
  Report Type: Report from Study
  Country: FR (occurrence: FR)
  Receive Date: 20120831
  Receipt Date: 20120831
  Transmission Date: 20130627
  Serious: Yes (Hospitalization)
  Sender: FDA-Public Use
  Company Number: FR-ABBOTT-12P-056-0972934-02

PATIENT
  Age: 64 Year
  Sex: Female

DRUGS (6)
  1. HUMIRA [Suspect]
     Indication: CROHN^S DISEASE
     Route: 058
     Dates: start: 20081022, end: 20081022
  2. HUMIRA [Suspect]
     Dosage: week 2
     Route: 058
  3. HUMIRA [Suspect]
     Route: 058
     Dates: end: 20090312
  4. IMODIUM [Concomitant]
     Indication: CROHN^S DISEASE
     Dates: start: 20090414
  5. SPASFON [Concomitant]
     Indication: PROCEDURAL PAIN
     Dosage: PHLOROGLUCINOL 80MG TRIMETHYLPHLOROGLUCINOL 80MG
     Dates: start: 20090414
  6. FERROSTRANE [Concomitant]
     Indication: ANAEMIA POSTOPERATIVE
     Dates: start: 20090414

REACTIONS (3)
  - Small intestinal obstruction [Not Recovered/Not Resolved]
  - Abdominal adhesions [Not Recovered/Not Resolved]
  - Small intestinal perforation [Not Recovered/Not Resolved]
